FAERS Safety Report 4644256-9 (Version None)
Quarter: 2005Q2

REPORT INFORMATION
  Report Type: 
  Country: None (occurrence: None)
  Receive Date: 20050331
  Receipt Date: 20050104
  Transmission Date: 20051028
  Serious: No
  Sender: FDA-Public Use
  Company Number: 05P-163-0285291-00

PATIENT
  Age: 50 Year
  Sex: Male
  Weight: 181 kg

DRUGS (9)
  1. HUMIRA [Suspect]
     Indication: RHEUMATOID ARTHRITIS
     Dosage: 40 MG, 1 IN 2 WK, SUBCUTANEOUS
     Route: 058
     Dates: start: 20041005
  2. PREDNISONE [Concomitant]
  3. PROPACET 100 [Concomitant]
  4. CELECOXIB [Concomitant]
  5. BUPROPION HYDROCHLORIDE [Concomitant]
  6. TRAZODONE HCL [Concomitant]
  7. ACETYL SALICYLIC ACID USP BAT [Concomitant]
  8. LOVASTATIN [Concomitant]
  9. GARLIC TABLET [Concomitant]

REACTIONS (2)
  - HOT FLUSH [None]
  - VISION BLURRED [None]
